FAERS Safety Report 6079297-0 (Version None)
Quarter: 2009Q1

REPORT INFORMATION
  Report Type: 
  Country: None (occurrence: None)
  Receive Date: 20090216
  Receipt Date: 20090202
  Transmission Date: 20090719
  Serious: Yes (Hospitalization)
  Sender: FDA-Public Use
  Company Number: ES-PFIZER INC-2009164349

PATIENT

DRUGS (2)
  1. GABAPENTIN [Suspect]
     Dosage: 600 MG/8 HR
  2. MORPHINE [Suspect]
     Dosage: 10 MG, 1X/DAY

REACTIONS (7)
  - BACK PAIN [None]
  - CHOREA [None]
  - DISORIENTATION [None]
  - HALLUCINATION, VISUAL [None]
  - PSYCHOTIC DISORDER [None]
  - RENAL IMPAIRMENT [None]
  - SOMNOLENCE [None]
